FAERS Safety Report 4706858-0 (Version None)
Quarter: 2005Q3

REPORT INFORMATION
  Report Type: 
  Country: None (occurrence: None)
  Receive Date: 20050706
  Receipt Date: 20050629
  Transmission Date: 20060218
  Serious: Yes (Hospitalization)
  Sender: FDA-Public Use
  Company Number: US-MERCK-0506USA04378

PATIENT

DRUGS (5)
  1. VIOXX [Suspect]
     Indication: NECK PAIN
     Route: 065
     Dates: start: 19990901, end: 20030401
  2. VIOXX [Suspect]
     Route: 065
     Dates: start: 20030401, end: 20040901
  3. VIOXX [Suspect]
     Indication: ROAD TRAFFIC ACCIDENT
     Route: 065
     Dates: start: 19990901, end: 20030401
  4. VIOXX [Suspect]
     Route: 065
     Dates: start: 20030401, end: 20040901
  5. BEXTRA [Concomitant]
     Route: 065

REACTIONS (2)
  - PRESCRIBED OVERDOSE [None]
  - RENAL DISORDER [None]
